FAERS Safety Report 9184765 (Version 2)
Quarter: 2013Q2

REPORT INFORMATION
  Report Type: Spontaneous
  Country: US (occurrence: US)
  Receive Date: 20130325
  Receipt Date: 20130401
  Transmission Date: 20140414
  Serious: Yes (Other)
  Sender: FDA-Public Use
  Company Number: PHHY2013US027835

PATIENT
  Age: 66 Year
  Sex: Male

DRUGS (7)
  1. GLEEVEC [Suspect]
     Indication: GASTROINTESTINAL STROMAL TUMOUR
     Dosage: 200 MG, UNK
  2. GLEEVEC [Suspect]
     Dosage: 400 MG, UNK
  3. GLEEVEC [Suspect]
     Dosage: 200 MG, UNK
  4. PRAZOSIN [Concomitant]
     Dosage: UNK UKN, UNK
  5. FELODIPINE [Concomitant]
     Dosage: UNK UKN, UNK
  6. LISINOPRIL [Concomitant]
     Dosage: UNK UKN, UNK
  7. PRAVASTATIN [Concomitant]
     Dosage: UNK UKN, UNK

REACTIONS (5)
  - Toxicity to various agents [Unknown]
  - Papilloedema [Recovering/Resolving]
  - Blindness [Unknown]
  - Pupillary disorder [Unknown]
  - Visual impairment [Unknown]
